FAERS Safety Report 8411806-6 (Version None)
Quarter: 2012Q2

REPORT INFORMATION
  Report Type: 
  Country: None (occurrence: None)
  Receive Date: 20120605
  Receipt Date: 20120509
  Transmission Date: 20120825
  Serious: No
  Sender: FDA-Public Use
  Company Number: US-AMGEN-USASP2012029374

PATIENT
  Sex: Female

DRUGS (7)
  1. PREDNISONE [Concomitant]
  2. HYDROXYCHLOROQUINE SULFATE [Concomitant]
  3. MELOXICAM [Concomitant]
  4. SULFASALAZINE [Concomitant]
  5. TYLENOL ARTHRITIS [Concomitant]
  6. ENBREL [Suspect]
     Indication: RHEUMATOID ARTHRITIS
     Dosage: 50 MG, QWK
     Dates: start: 20020101
  7. VICODIN [Concomitant]

REACTIONS (2)
  - DRUG INEFFECTIVE [None]
  - RHEUMATOID ARTHRITIS [None]
